FAERS Safety Report 10237452 (Version 1)
Quarter: 2014Q2

REPORT INFORMATION
  Report Type: Spontaneous
  Country: GB (occurrence: GB)
  Receive Date: 20140615
  Receipt Date: 20140615
  Transmission Date: 20141212
  Serious: Yes (Other)
  Sender: FDA-Public Use
  Company Number: PHFR2014GB004142

PATIENT
  Age: 52 Year
  Sex: Female

DRUGS (1)
  1. CLOZARIL [Suspect]
     Indication: SCHIZOPHRENIA
     Dosage: UNK
     Route: 048
     Dates: start: 19990720

REACTIONS (6)
  - Suicide attempt [Unknown]
  - Head injury [Unknown]
  - Respiratory failure [Unknown]
  - Skull fracture [Unknown]
  - Spinal fracture [Unknown]
  - Skeletal injury [Unknown]
